FAERS Safety Report 20126577 (Version 1)
Quarter: 2021Q4

REPORT INFORMATION
  Report Type: Spontaneous
  Country: IT (occurrence: IT)
  Receive Date: 20211129
  Receipt Date: 20211129
  Transmission Date: 20220303
  Serious: Yes (Other)
  Sender: FDA-Public Use
  Company Number: IT-PFIZER INC-202101597479

PATIENT
  Age: 69 Year
  Sex: Female

DRUGS (4)
  1. METHOTREXATE [Suspect]
     Active Substance: METHOTREXATE
     Indication: Seizure
     Dosage: UNK, CYCLIC ( FOR SIX CYCLES EVERY THREE WEEKS)
     Dates: start: 201508, end: 201602
  2. CYTARABINE [Suspect]
     Active Substance: CYTARABINE
     Indication: Seizure
     Dosage: UNK, CYCLIC (SIX CYCLES EVERY THREE WEEKS)
     Dates: start: 201508, end: 201602
  3. RITUXIMAB [Suspect]
     Active Substance: RITUXIMAB
     Indication: Seizure
     Dosage: UNK, CYCLIC (SIX CYCLES EVERY THREE WEEKS)
     Dates: start: 201508, end: 201602
  4. THIOTEPA [Suspect]
     Active Substance: THIOTEPA
     Indication: Seizure
     Dosage: UNK, CYCLIC (SIX CYCLES FOR THREE WEEKS)
     Dates: start: 201508, end: 201602

REACTIONS (2)
  - Febrile neutropenia [Unknown]
  - Off label use [Unknown]
